FAERS Safety Report 26214702 (Version 1)
Quarter: 2025Q4

REPORT INFORMATION
  Report Type: Spontaneous
  Country: US (occurrence: US)
  Receive Date: 20251230
  Receipt Date: 20251230
  Transmission Date: 20260117
  Serious: No
  Sender: MYLAN
  Company Number: US-MYLANLABS-2025M1109307

PATIENT
  Sex: Male

DRUGS (1)
  1. BUPRENORPHINE AND NALOXONE SUBLINGUAL FILM [Suspect]
     Active Substance: BUPRENORPHINE HYDROCHLORIDE\NALOXONE HYDROCHLORIDE
     Indication: Product used for unknown indication
     Dosage: UNK

REACTIONS (4)
  - Gastroenteritis viral [Unknown]
  - Vomiting [Unknown]
  - Withdrawal syndrome [Unknown]
  - Product dose omission issue [Unknown]

NARRATIVE: CASE EVENT DATE: 20250101
